FAERS Safety Report 6523149-6 (Version None)
Quarter: 2009Q4

REPORT INFORMATION
  Report Type: 
  Country: None (occurrence: None)
  Receive Date: 20091222
  Receipt Date: 20091211
  Transmission Date: 20100525
  Serious: Yes (Hospitalization, Other)
  Sender: FDA-Public Use
  Company Number: DSJ-2009-14729

PATIENT
  Age: 55 Year
  Sex: Female
  Weight: 40 kg

DRUGS (2)
  1. OLMESARTAN MEDOXOMIL [Suspect]
     Indication: HYPERTENSION
     Dosage: 10 MG ( 10  MG, 1 IN 1 D), PER ORAL
     Route: 048
     Dates: end: 20091105
  2. NORVASC OD        (AMLODIPINE BESILATE) [Suspect]
     Indication: HYPERTENSION
     Dosage: 5 MG ( 5 MG, 1 IN 1 D), PER ORAL
     Route: 048
     Dates: end: 20091105

REACTIONS (3)
  - MULTIPLE DRUG OVERDOSE INTENTIONAL [None]
  - SHOCK [None]
  - SUICIDE ATTEMPT [None]
